FAERS Safety Report 19712727 (Version 1)
Quarter: 2021Q3

REPORT INFORMATION
  Report Type: Report from Study
  Country: US (occurrence: US)
  Receive Date: 20210817
  Receipt Date: 20210817
  Transmission Date: 20211014
  Serious: Yes (Hospitalization)
  Sender: FDA-Public Use
  Company Number: NVSC2021US184762

PATIENT
  Age: 67 Year
  Sex: Female

DRUGS (1)
  1. ENTRESTO [Suspect]
     Active Substance: SACUBITRIL\VALSARTAN
     Indication: PRODUCT USED FOR UNKNOWN INDICATION
     Dosage: 50 MG, BID (WAS TAKING AS PER DOCTOR TWICE A DAY WHEN B/P WAS OVER 100/60 SO TAKING INTERMITTENTLY S
     Route: 048
     Dates: start: 20210619, end: 20210725

REACTIONS (3)
  - Arrhythmia [Recovered/Resolved]
  - Hypotension [Recovering/Resolving]
  - Liver disorder [Recovering/Resolving]

NARRATIVE: CASE EVENT DATE: 20210619
